FAERS Safety Report 24571959 (Version 2)
Quarter: 2024Q4

REPORT INFORMATION
  Report Type: Report from Study
  Country: JP (occurrence: JP)
  Receive Date: 20241101
  Receipt Date: 20241230
  Transmission Date: 20250115
  Serious: Yes (Other)
  Sender: MERZ
  Company Number: JP-teijin-202404049_XEO_P_1

PATIENT

DRUGS (20)
  1. XEOMIN [Suspect]
     Active Substance: INCOBOTULINUMTOXINA
     Indication: Muscle spasticity
     Dosage: 740 INTERNATIONAL UNIT
     Route: 030
     Dates: start: 20230719, end: 20230719
  2. XEOMIN [Suspect]
     Active Substance: INCOBOTULINUMTOXINA
     Indication: Muscle spasticity
     Dosage: 200 INTERNATIONAL UNIT
     Route: 030
     Dates: start: 20230425, end: 20230425
  3. XEOMIN [Suspect]
     Active Substance: INCOBOTULINUMTOXINA
     Dosage: 300 INTERNATIONAL UNIT
     Route: 030
     Dates: start: 20231107, end: 20231107
  4. XEOMIN [Suspect]
     Active Substance: INCOBOTULINUMTOXINA
     Dosage: 350 INTERNATIONAL UNIT
     Route: 030
     Dates: start: 20240130, end: 20240130
  5. XEOMIN [Suspect]
     Active Substance: INCOBOTULINUMTOXINA
     Dosage: 340 INTERNATIONAL UNIT
     Route: 030
     Dates: start: 20240423, end: 20240423
  6. CARBOCYSTEINE [Concomitant]
     Active Substance: CARBOCYSTEINE
     Indication: Bronchitis chronic
     Dosage: 500 MILLIGRAM
  7. CHLORMADINONE ACETATE [Concomitant]
     Active Substance: CHLORMADINONE ACETATE
     Indication: Benign prostatic hyperplasia
     Dosage: 25 MILLIGRAM
  8. CARBIDOPA\LEVODOPA [Concomitant]
     Active Substance: CARBIDOPA\LEVODOPA
     Indication: Progressive supranuclear palsy
     Dosage: 200 MILLIGRAM
  9. LEVETIRACETAM [Concomitant]
     Active Substance: LEVETIRACETAM
     Indication: Epilepsy
     Dosage: 250 MILLIGRAM
  10. VONOPRAZAN FUMARATE [Concomitant]
     Active Substance: VONOPRAZAN FUMARATE
     Indication: Chronic gastritis
     Dosage: 10 MILLIGRAM
  11. NEUPRO [Concomitant]
     Active Substance: ROTIGOTINE
     Indication: Progressive supranuclear palsy
     Dosage: 18 MILLIGRAM
     Route: 061
  12. MAGNESIUM OXIDE [Concomitant]
     Active Substance: MAGNESIUM OXIDE
     Indication: Constipation
     Dosage: 500 MILLIGRAM
  13. SODIUM CHLORIDE [Concomitant]
     Active Substance: SODIUM CHLORIDE
     Indication: Hyponatraemia
     Dosage: 1 GRAM
  14. AMLODIPINE BESYLATE [Concomitant]
     Active Substance: AMLODIPINE BESYLATE
     Indication: Hypertension
     Dosage: 5 MILLIGRAM
  15. TELMISARTAN [Concomitant]
     Active Substance: TELMISARTAN
     Indication: Hypertension
     Dosage: 40 MILLIGRAM
     Dates: end: 20240115
  16. MIYA-BM [Concomitant]
     Active Substance: CLOSTRIDIUM BUTYRICUM SPORES STRAIN M-55
     Indication: Irritable bowel syndrome
     Dosage: 0.5 GRAM
  17. AMINO ACIDS\DEXTROSE\ELECTROLYTES NOS\SOYBEAN OIL\VITAMINS [Concomitant]
     Active Substance: AMINO ACIDS\DEXTROSE\ELECTROLYTES NOS\SOYBEAN OIL\VITAMINS
     Indication: Hypophagia
     Dosage: 600 GRAM
  18. OFLOXACIN [Concomitant]
     Active Substance: OFLOXACIN
     Indication: Otitis media chronic
     Route: 001
  19. GLYCOSAMINOGLYCANS [Concomitant]
     Active Substance: GLYCOSAMINOGLYCANS
     Indication: Eczema asteatotic
     Route: 061
  20. SODIUM PHOSPHATE, DIBASIC\SODIUM PHOSPHATE, MONOBASIC [Concomitant]
     Active Substance: SODIUM PHOSPHATE, DIBASIC\SODIUM PHOSPHATE, MONOBASIC
     Indication: Hypophosphataemia
     Dosage: 100 MILLIGRAM
     Dates: end: 20230828

REACTIONS (11)
  - Hyperkalaemia [Recovered/Resolved]
  - Eczema asteatotic [Recovering/Resolving]
  - Dry eye [Recovered/Resolved]
  - Dermatitis [Recovered/Resolved]
  - Burns second degree [Recovered/Resolved]
  - Blepharitis [Recovered/Resolved]
  - Hypertension [Recovering/Resolving]
  - Hypozincaemia [Recovered/Resolved]
  - Anaemia vitamin B12 deficiency [Recovering/Resolving]
  - Anaemia folate deficiency [Recovering/Resolving]
  - Off label use [Unknown]

NARRATIVE: CASE EVENT DATE: 20230719
